FAERS Safety Report 5803099-0 (Version None)
Quarter: 2008Q3

REPORT INFORMATION
  Report Type: 
  Country: None (occurrence: None)
  Receive Date: 20080708
  Receipt Date: 20080625
  Transmission Date: 20090109
  Serious: Yes (Hospitalization, Disabling)
  Sender: FDA-Public Use
  Company Number: JP-ABBOTT-08P-087-0449487-00

PATIENT
  Sex: Male
  Weight: 37 kg

DRUGS (8)
  1. LEUPROLIDE ACETATE [Suspect]
     Indication: PRECOCIOUS PUBERTY
     Route: 058
     Dates: start: 20080124, end: 20080124
  2. LEUPROLIDE ACETATE [Suspect]
     Route: 058
     Dates: start: 20080221, end: 20080221
  3. LEUPROLIDE ACETATE [Suspect]
     Route: 058
     Dates: start: 20080324
  4. LEUPROLIDE ACETATE [Suspect]
     Route: 058
     Dates: start: 20080421, end: 20080421
  5. LEUPROLIDE ACETATE [Suspect]
     Route: 058
     Dates: start: 20080519, end: 20080519
  6. LEUPROLIDE ACETATE [Suspect]
     Route: 058
     Dates: start: 20080616, end: 20080616
  7. MONTELUKAST SODIUM [Concomitant]
     Indication: DRUG USE FOR UNKNOWN INDICATION
     Route: 048
     Dates: start: 20080221, end: 20080321
  8. EPINASTINE HYDROCHLORIDE [Concomitant]
     Indication: DRUG USE FOR UNKNOWN INDICATION
     Route: 048
     Dates: start: 20080221, end: 20080321

REACTIONS (3)
  - SCROTAL DISORDER [None]
  - SCROTAL PAIN [None]
  - SCROTAL SWELLING [None]
